FAERS Safety Report 4630450-X (Version None)
Quarter: 2005Q2

REPORT INFORMATION
  Report Type: 
  Country: None (occurrence: None)
  Receive Date: 20050405
  Receipt Date: 20050405
  Transmission Date: 20051028
  Serious: No
  Sender: FDA-Public Use
  Company Number: None

PATIENT
  Sex: Male
  Weight: 71 kg

DRUGS (1)
  1. GEMCITABINE [Suspect]
     Dosage: 1000 MG/M2 IV OVER 30 MIN. Q WK. X 7 CYCLE 2 +:  (CYCLE = 4 WKS.)
     Route: 042

REACTIONS (3)
  - DEPRESSION [None]
  - NAUSEA [None]
  - VOMITING [None]
